FAERS Safety Report 4487913-X (Version None)
Quarter: 2004Q4

REPORT INFORMATION
  Report Type: 
  Country: None (occurrence: None)
  Receive Date: 20041026
  Receipt Date: 20041008
  Transmission Date: 20050328
  Serious: Yes (Other)
  Sender: FDA-Public Use
  Company Number: USA041080643

PATIENT
  Age: 48 Year
  Sex: Female

DRUGS (2)
  1. CYMBALTA [Suspect]
     Indication: DEPRESSION
     Dosage: 30 MG/2X DAY
     Dates: start: 20041001
  2. METHADONE HCL [Concomitant]

REACTIONS (1)
  - RESPIRATORY DISTRESS [None]
